FAERS Safety Report 5278287-5 (Version None)
Quarter: 2007Q1

REPORT INFORMATION
  Report Type: 
  Country: None (occurrence: None)
  Receive Date: 20070322
  Receipt Date: 20070315
  Transmission Date: 20070707
  Serious: Yes (Death)
  Sender: FDA-Public Use
  Company Number: E2020-01002-SPO-JP

PATIENT
  Age: 72 Year
  Sex: Male
  Weight: 75 kg

DRUGS (8)
  1. ARICEPT [Suspect]
     Indication: DEMENTIA ALZHEIMER'S TYPE
     Dosage: 3 MG, 1 IN 1 D, ORAL; 5 MG, 1 IN 1 D, ORAL
     Route: 048
     Dates: start: 20070206, end: 20070214
  2. ARICEPT [Suspect]
     Indication: DEMENTIA ALZHEIMER'S TYPE
     Dosage: 3 MG, 1 IN 1 D, ORAL; 5 MG, 1 IN 1 D, ORAL
     Route: 048
     Dates: start: 20070215
  3. BASEN OD (VOGLIBOSE) [Concomitant]
  4. BAYSLOWTH (VOGLIBOSE) [Concomitant]
  5. TANATRIL (IMIDAPRIL HYDROCHLORIDE) [Concomitant]
  6. MELUCOMON (METOPROLOL TARTRATE)\ [Concomitant]
  7. CALBLOCK (AZELNIDIPINE) [Concomitant]
  8. NIFELANTERN CR (NIFEDIPINE) [Concomitant]

REACTIONS (7)
  - ARRHYTHMIA [None]
  - CHEST DISCOMFORT [None]
  - ELECTROCARDIOGRAM QT PROLONGED [None]
  - INSOMNIA [None]
  - MALAISE [None]
  - MYOCARDIAL ISCHAEMIA [None]
  - SUICIDE ATTEMPT [None]
